FAERS Safety Report 15075733 (Version 1)
Quarter: 2018Q2

REPORT INFORMATION
  Report Type: Spontaneous
  Country: US (occurrence: US)
  Receive Date: 20180627
  Receipt Date: 20180627
  Transmission Date: 20180711
  Serious: Yes (Hospitalization)
  Sender: FDA-Public Use
  Company Number: US-SA-2018SA154851

PATIENT
  Age: 37 Year
  Sex: Female

DRUGS (1)
  1. TOUJEO [Suspect]
     Active Substance: INSULIN GLARGINE
     Indication: PRODUCT USED FOR UNKNOWN INDICATION
     Dosage: 7 UNITS, QD
     Dates: start: 20180501, end: 20180607

REACTIONS (2)
  - Product quality issue [Unknown]
  - Hypoglycaemia [Recovered/Resolved]
